FAERS Safety Report 10204975 (Version 2)
Quarter: 2014Q2

REPORT INFORMATION
  Report Type: Spontaneous
  Country: US (occurrence: US)
  Receive Date: 20140529
  Receipt Date: 20140630
  Transmission Date: 20141212
  Serious: Yes (Other)
  Sender: FDA-Public Use
  Company Number: CHPA2014US007217

PATIENT
  Age: 78 Year
  Sex: Female

DRUGS (6)
  1. GAS-X ULTRA STRENGTH [Suspect]
     Indication: FLATULENCE
     Dosage: 1 DF, UNK
     Route: 048
     Dates: start: 20140525
  2. GAS-X ULTRA STRENGTH [Suspect]
     Indication: ULCER
  3. GAS-X ULTRA STRENGTH [Suspect]
     Indication: OFF LABEL USE
  4. DEXILANT [Concomitant]
  5. ZANTAC [Concomitant]
  6. DONNATAL [Concomitant]

REACTIONS (2)
  - Throat irritation [Recovered/Resolved]
  - Wrong technique in drug usage process [Unknown]
